FAERS Safety Report 8235536-9 (Version None)
Quarter: 2012Q1

REPORT INFORMATION
  Report Type: 
  Country: None (occurrence: None)
  Receive Date: 20120322
  Receipt Date: 20120313
  Transmission Date: 20120608
  Serious: Yes (Life-Threatening, Hospitalization, Disabling, Other)
  Sender: FDA-Public Use
  Company Number: AUR-APL-2012-01391

PATIENT
  Age: 46 Year
  Sex: Male

DRUGS (2)
  1. SIMVASTATIN [Suspect]
     Indication: HYPERCHOLESTEROLAEMIA
     Dosage: 20 MG, ORAL
     Route: 048
     Dates: start: 20120208, end: 20120227
  2. FLOXACILLIN SODIUM [Concomitant]

REACTIONS (6)
  - POLYDIPSIA [None]
  - FATIGUE [None]
  - WEIGHT DECREASED [None]
  - POLYURIA [None]
  - DRY MOUTH [None]
  - VOMITING [None]
